FAERS Safety Report 7677511-9 (Version None)
Quarter: 2011Q3

REPORT INFORMATION
  Report Type: 
  Country: None (occurrence: None)
  Receive Date: 20110811
  Receipt Date: 20110802
  Transmission Date: 20111222
  Serious: Yes (Hospitalization)
  Sender: FDA-Public Use
  Company Number: US-JNJFOC-20100308375

PATIENT
  Sex: Female
  Weight: 8.29 kg

DRUGS (13)
  1. FOLIC ACID [Concomitant]
  2. MUPIROCIN [Concomitant]
  3. MICONAZOLE [Concomitant]
  4. PREVACID [Concomitant]
  5. FERROUS SULFATE TAB [Concomitant]
  6. INFLIXIMAB [Suspect]
     Indication: INFLAMMATORY BOWEL DISEASE
     Route: 042
     Dates: start: 20090905, end: 20091015
  7. ANTIBIOTICS [Concomitant]
     Indication: INFLAMMATORY BOWEL DISEASE
  8. CLOTRIMAZOLE [Concomitant]
  9. LEUKINE [Concomitant]
     Dates: start: 20100222, end: 20110308
  10. GRANULOCYTE MACROPHAGE COLONY STIM FACTOR [Concomitant]
  11. METHOTREXATE [Concomitant]
  12. ELIDEL [Concomitant]
  13. TYLENOL-500 [Concomitant]

REACTIONS (2)
  - INFLAMMATORY BOWEL DISEASE [None]
  - PYREXIA [None]
